FAERS Safety Report 7933679-8 (Version None)
Quarter: 2011Q4

REPORT INFORMATION
  Report Type: 
  Country: None (occurrence: None)
  Receive Date: 20111122
  Receipt Date: 20111109
  Transmission Date: 20120403
  Serious: Yes (Hospitalization, Other)
  Sender: FDA-Public Use
  Company Number: PHHY2011BR099119

PATIENT
  Sex: Male

DRUGS (1)
  1. DIOVAN [Suspect]
     Dosage: 160 MG, UNK

REACTIONS (4)
  - INFARCTION [None]
  - PULSE PRESSURE DECREASED [None]
  - ASTHENIA [None]
  - CEREBROVASCULAR ACCIDENT [None]
